FAERS Safety Report 11631224 (Version 3)
Quarter: 2015Q4

REPORT INFORMATION
  Report Type: Report from Study
  Country: MX (occurrence: MX)
  Receive Date: 20151014
  Receipt Date: 20151109
  Transmission Date: 20160304
  Serious: Yes (Other)
  Sender: FDA-Public Use
  Company Number: PHHY2015MX122943

PATIENT
  Age: 73 Year
  Sex: Female

DRUGS (5)
  1. EXFORGE [Suspect]
     Active Substance: AMLODIPINE BESYLATE\VALSARTAN
     Indication: HYPERTENSION
     Dosage: (VALSARTAN 160 MG AND AMLODIPINE 5 MG), QD
     Route: 065
  2. ASPIRIN FORTE [Concomitant]
     Indication: PRODUCT USED FOR UNKNOWN INDICATION
     Dosage: UNK
     Route: 065
  3. METOPROLOL [Concomitant]
     Active Substance: METOPROLOL
     Indication: CARDIOMEGALY
     Dosage: 2 OT, QHS
     Route: 065
  4. LANOXIN [Concomitant]
     Active Substance: DIGOXIN
     Indication: CARDIOMEGALY
     Dosage: 1 OT, QD
     Route: 065
  5. ASPIRIN PROTECT [Concomitant]
     Active Substance: ASPIRIN
     Indication: CARDIOMEGALY
     Dosage: 1 OT, QHS
     Route: 065

REACTIONS (8)
  - Wound [Recovered/Resolved]
  - Colitis [Unknown]
  - Upper limb fracture [Recovering/Resolving]
  - Lower limb fracture [Unknown]
  - Hand fracture [Unknown]
  - Fall [Not Recovered/Not Resolved]
  - Dizziness [Unknown]
  - Ligament sprain [Recovered/Resolved with Sequelae]

NARRATIVE: CASE EVENT DATE: 20150604
